FAERS Safety Report 11361464 (Version 1)
Quarter: 2015Q3

REPORT INFORMATION
  Report Type: Spontaneous
  Country: AU (occurrence: AU)
  Receive Date: 20150810
  Receipt Date: 20150810
  Transmission Date: 20151125
  Serious: Yes (Hospitalization, Other)
  Sender: FDA-Public Use
  Company Number: AU-GLAXOSMITHKLINE-AU2015GSK113031

PATIENT
  Age: 58 Year
  Sex: Male

DRUGS (1)
  1. NICABATE CQ [Suspect]
     Active Substance: NICOTINE
     Indication: SMOKING CESSATION THERAPY
     Dosage: 21 MG, UNK
     Route: 062
     Dates: start: 20150731, end: 20150731

REACTIONS (4)
  - Loss of consciousness [Recovered/Resolved]
  - Cerebrovascular accident [Recovered/Resolved]
  - Circulatory collapse [Recovered/Resolved]
  - Overdose [Recovered/Resolved]
